FAERS Safety Report 4614995-4 (Version None)
Quarter: 2005Q1

REPORT INFORMATION
  Report Type: 
  Country: None (occurrence: None)
  Receive Date: 20050322
  Receipt Date: 20050314
  Transmission Date: 20050727
  Serious: Yes (Hospitalization)
  Sender: FDA-Public Use
  Company Number: GB-ROCHE-398737

PATIENT
  Age: 64 Year
  Sex: Male
  Weight: 80 kg

DRUGS (9)
  1. XELODA [Suspect]
     Indication: COLON CANCER METASTATIC
     Route: 048
     Dates: start: 20050119, end: 20050302
  2. VERAPAMIL [Concomitant]
     Route: 065
  3. ISOSORBIDE MONONITRATE [Concomitant]
     Route: 065
  4. ASPIRIN [Concomitant]
     Route: 065
  5. SIMVASTATIN [Concomitant]
     Route: 065
  6. DEXAMETHASONE [Concomitant]
     Route: 065
  7. CIPROFLOXACIN [Concomitant]
     Route: 065
  8. AUGMENTIN '125' [Concomitant]
     Route: 065
  9. ENALAPRIL [Concomitant]
     Route: 065

REACTIONS (3)
  - BALANITIS [None]
  - HYPONATRAEMIA [None]
  - STOMATITIS [None]
